FAERS Safety Report 6812066-X (Version None)
Quarter: 2010Q3

REPORT INFORMATION
  Report Type: 
  Country: None (occurrence: None)
  Receive Date: 20100701
  Receipt Date: 20100621
  Transmission Date: 20110219
  Serious: Yes (Life-Threatening, Other)
  Sender: FDA-Public Use
  Company Number: TW-MILLENNIUM PHARMACEUTICALS, INC.-2010-03022

PATIENT

DRUGS (4)
  1. VELCADE [Suspect]
     Indication: MULTIPLE MYELOMA
     Dosage: 1.3 MG/M2, CYCLIC
     Dates: start: 20090528, end: 20090910
  2. VELCADE [Suspect]
     Dosage: 1.3 MG/M2, UNK
     Route: 042
     Dates: start: 20100528, end: 20100604
  3. THALIDOMIDE [Concomitant]
     Dosage: UNK
     Dates: start: 20090528
  4. DEXAMETHASONE [Concomitant]
     Dosage: UNK
     Dates: start: 20090528

REACTIONS (4)
  - DEAFNESS UNILATERAL [None]
  - RETINAL DETACHMENT [None]
  - RETINAL HAEMORRHAGE [None]
  - THROMBOCYTOPENIA [None]
